FAERS Safety Report 5200387-6 (Version None)
Quarter: 2007Q1

REPORT INFORMATION
  Report Type: 
  Country: None (occurrence: None)
  Receive Date: 20070105
  Receipt Date: 20061228
  Transmission Date: 20070707
  Serious: Yes (Other)
  Sender: FDA-Public Use
  Company Number: FI-PFIZER INC-2007000068

PATIENT
  Sex: Male

DRUGS (2)
  1. LYRICA [Suspect]
     Indication: NEURALGIA
     Dosage: DAILY DOSE:100MG-TEXT:25MG IN MORNING, 75MG IN EVENING
     Route: 048
  2. LYRICA [Suspect]
     Indication: GENERALISED ANXIETY DISORDER

REACTIONS (3)
  - ARRHYTHMIA [None]
  - DYSPEPSIA [None]
  - FEELING DRUNK [None]
